FAERS Safety Report 8947682 (Version 2)
Quarter: 2015Q2

REPORT INFORMATION
  Report Type: Report from Study
  Country: FR (occurrence: FR)
  Receive Date: 20121205
  Receipt Date: 20150604
  Transmission Date: 20150821
  Serious: Yes (Death)
  Sender: FDA-Public Use
  Company Number: FR-ROCHE-1163527

PATIENT
  Age: 78 Year
  Sex: Male

DRUGS (2)
  1. CORTANCYL [Concomitant]
     Active Substance: PREDNISONE
     Route: 065
  2. RITUXIMAB [Suspect]
     Active Substance: RITUXIMAB
     Indication: RHEUMATOID ARTHRITIS
     Dosage: ON 17/OCT/2007, RECEIVED DAY 15 DOSE
     Route: 042
     Dates: start: 20071003

REACTIONS (1)
  - Death [Fatal]

NARRATIVE: CASE EVENT DATE: 20090127
